FAERS Safety Report 11183715 (Version 2)
Quarter: 2015Q2

REPORT INFORMATION
  Report Type: Spontaneous
  Country: JP (occurrence: JP)
  Receive Date: 20150612
  Receipt Date: 20150619
  Transmission Date: 20150821
  Serious: Yes (Hospitalization, Other)
  Sender: FDA-Public Use
  Company Number: JP-ELI_LILLY_AND_COMPANY-JP201505009523

PATIENT
  Age: 79 Year
  Sex: Female

DRUGS (2)
  1. MAGMITT [Suspect]
     Active Substance: MAGNESIUM OXIDE
     Dosage: 330 MG, QD
     Route: 048
     Dates: end: 20150524
  2. ZYPREXA [Suspect]
     Active Substance: OLANZAPINE
     Indication: PRODUCT USED FOR UNKNOWN INDICATION
     Dosage: UNK
     Route: 048
     Dates: end: 20150524

REACTIONS (2)
  - Interstitial lung disease [Unknown]
  - Hypermagnesaemia [Unknown]

NARRATIVE: CASE EVENT DATE: 20150524
